FAERS Safety Report 11112434 (Version 1)
Quarter: 2015Q2

REPORT INFORMATION
  Report Type: Spontaneous
  Country: US (occurrence: None)
  Receive Date: 20150513
  Receipt Date: 20150513
  Transmission Date: 20150821
  Serious: No
  Sender: FDA-Public Use
  Company Number: None

PATIENT
  Age: 49 Year
  Sex: Female

DRUGS (1)
  1. ENBREL [Suspect]
     Active Substance: ETANERCEPT
     Indication: SPONDYLOARTHROPATHY
     Dosage: 25MG ?TWICE PER WEEK?SQ
     Dates: start: 20150413, end: 20150511

REACTIONS (2)
  - Hypoaesthesia [None]
  - Myalgia [None]

NARRATIVE: CASE EVENT DATE: 20150415
